FAERS Safety Report 15595870 (Version 2)
Quarter: 2018Q4

REPORT INFORMATION
  Report Type: Spontaneous
  Country: DE (occurrence: DE)
  Receive Date: 20181107
  Receipt Date: 20181129
  Transmission Date: 20190205
  Serious: Yes (Other)
  Sender: FDA-Public Use
  Company Number: DE-ALK-ABELLO A/S-2018AA003722

PATIENT

DRUGS (3)
  1. GRAZAX [Suspect]
     Active Substance: PHLEUM PRATENSE POLLEN
     Indication: CONJUNCTIVITIS ALLERGIC
     Dosage: 75000 SQ
     Dates: start: 20180920, end: 20181004
  2. GRAZAX [Suspect]
     Active Substance: PHLEUM PRATENSE POLLEN
     Dosage: UNK
     Dates: start: 20181023
  3. AERIUS (DESLORATADINE) [Concomitant]
     Active Substance: DESLORATADINE
     Indication: CONJUNCTIVITIS ALLERGIC
     Dosage: 5 MILLIGRAM, 1-3 TABLETS PER DAY
     Route: 048
     Dates: start: 201806, end: 20181026

REACTIONS (6)
  - Dysphagia [Recovered/Resolved]
  - Angioedema [Recovered/Resolved]
  - Fear [Recovered/Resolved]
  - Throat irritation [Recovered/Resolved]
  - Swollen tongue [Recovered/Resolved]
  - Pharyngeal oedema [Recovered/Resolved]

NARRATIVE: CASE EVENT DATE: 201809
